FAERS Safety Report 5967540-5 (Version None)
Quarter: 2008Q4

REPORT INFORMATION
  Report Type: 
  Country: None (occurrence: None)
  Receive Date: 20081125
  Receipt Date: 20081114
  Transmission Date: 20090506
  Serious: Yes (Hospitalization, Other)
  Sender: FDA-Public Use
  Company Number: TR-PFIZER INC-2008097061

PATIENT
  Age: 33 Year
  Sex: Female

DRUGS (2)
  1. HEPARIN SODIUM [Suspect]
     Dates: start: 20041101
  2. NIFEDIPINE [Concomitant]

REACTIONS (4)
  - INTRA-UTERINE DEATH [None]
  - RETROPERITONEAL HAEMATOMA [None]
  - SHOCK HAEMORRHAGIC [None]
  - THROMBOCYTOPENIA [None]
